FAERS Safety Report 9671248 (Version 2)
Quarter: 2013Q4

REPORT INFORMATION
  Report Type: Spontaneous
  Country: BR (occurrence: BR)
  Receive Date: 20131106
  Receipt Date: 20131106
  Transmission Date: 20140711
  Serious: Yes (Death)
  Sender: FDA-Public Use
  Company Number: BR-PFIZER INC-2012297516

PATIENT
  Age: 66 Year
  Sex: Male
  Weight: 56 kg

DRUGS (1)
  1. SUTENT [Suspect]
     Indication: RENAL CELL CARCINOMA
     Dosage: 50 MG, CYCLIC (4 PER 2), 1X/DAY
     Route: 048
     Dates: start: 20121110

REACTIONS (8)
  - Death [Fatal]
  - Pain in extremity [Unknown]
  - Diarrhoea [Unknown]
  - Yellow skin [Unknown]
  - Mouth haemorrhage [Recovered/Resolved]
  - Cough [Unknown]
  - Platelet count decreased [Unknown]
  - Faeces hard [Not Recovered/Not Resolved]
